FAERS Safety Report 8743673 (Version 2)
Quarter: 2013Q4

REPORT INFORMATION
  Report Type: Spontaneous
  Country: CA (occurrence: CA)
  Receive Date: 20120824
  Receipt Date: 20131101
  Transmission Date: 20140711
  Serious: No
  Sender: FDA-Public Use
  Company Number: CA-009507513-1207CAN011962

PATIENT
  Age: 45 Year
  Sex: 0
  Weight: 78.5 kg

DRUGS (7)
  1. SAPHRIS [Suspect]
     Indication: BIPOLAR DISORDER
     Dosage: 5 MG, BID
     Route: 060
     Dates: start: 201206, end: 201206
  2. SAPHRIS [Suspect]
     Indication: AFFECTIVE DISORDER
  3. SYNTHROID [Concomitant]
     Indication: HYPOTHYROIDISM
     Dosage: 0.025 MG, QD
     Route: 048
  4. WELLBUTRIN [Concomitant]
     Dosage: 300 MG, QD
     Route: 048
  5. CARBOLITH [Concomitant]
     Dosage: 900 MG, QD
     Route: 048
  6. CLONAZEPAM [Concomitant]
     Dosage: UNK UNK, TID
  7. ABILIFY [Concomitant]
     Dosage: 1 MG, QD
     Route: 048
     Dates: start: 201106, end: 2012

REACTIONS (6)
  - Local swelling [Recovered/Resolved]
  - Local swelling [Recovered/Resolved]
  - Swollen tongue [Recovered/Resolved]
  - Dizziness [Recovered/Resolved]
  - Sedation [Recovered/Resolved]
  - Nausea [Recovered/Resolved]
